FAERS Safety Report 6672765-X (Version None)
Quarter: 2010Q2

REPORT INFORMATION
  Report Type: 
  Country: None (occurrence: None)
  Receive Date: 20100408
  Receipt Date: 20100329
  Transmission Date: 20101027
  Serious: Yes (Other)
  Sender: FDA-Public Use
  Company Number: US-AMGEN-TCS386617

PATIENT
  Sex: Female
  Weight: 102.6 kg

DRUGS (10)
  1. ENBREL [Suspect]
     Indication: RHEUMATOID ARTHRITIS
     Route: 058
     Dates: start: 20091214
  2. ENBREL [Suspect]
     Indication: PSORIATIC ARTHROPATHY
  3. TRAMADOL HCL [Concomitant]
  4. AMITIZA [Concomitant]
  5. FLEXERIL [Concomitant]
  6. LEXAPRO [Concomitant]
  7. XANAX [Concomitant]
  8. PROTONIX [Concomitant]
  9. VIVELLE [Concomitant]
  10. LYRICA [Concomitant]

REACTIONS (4)
  - ARTHRALGIA [None]
  - BRONCHITIS [None]
  - HEPATIC STEATOSIS [None]
  - HYPOAESTHESIA [None]
